FAERS Safety Report 4300183-8 (Version None)
Quarter: 2004Q1

REPORT INFORMATION
  Report Type: 
  Country: None (occurrence: None)
  Receive Date: 20040218
  Receipt Date: 20040203
  Transmission Date: 20041129
  Serious: Yes (Other)
  Sender: FDA-Public Use
  Company Number: K200400147

PATIENT
  Age: 28 Year
  Sex: Female

DRUGS (2)
  1. SEPTRA [Suspect]
     Indication: PNEUMOCYSTIS CARINII PNEUMONIA
     Dosage: 20/100MG/KG/D, INTRAVENOUS
     Route: 042
  2. METHYLPREDNISOLONE [Concomitant]

REACTIONS (2)
  - DRUG TOXICITY [None]
  - METABOLIC ACIDOSIS [None]
